FAERS Safety Report 4537103-7 (Version None)
Quarter: 2004Q4

REPORT INFORMATION
  Report Type: 
  Country: None (occurrence: None)
  Receive Date: 20041223
  Receipt Date: 20041215
  Transmission Date: 20050328
  Serious: Yes (Other)
  Sender: FDA-Public Use
  Company Number: DE-GLAXOSMITHKLINE-D0045484A

PATIENT
  Age: 72 Year
  Sex: Female
  Weight: 70 kg

DRUGS (3)
  1. LAMICTAL [Suspect]
     Indication: GRAND MAL CONVULSION
     Dosage: 100MG PER DAY
     Route: 065
     Dates: start: 20041105, end: 20041101
  2. NOVAMINSULFON [Concomitant]
     Route: 065
  3. METOCLOPRAMIDE HYDROCHLORIDE [Concomitant]
     Route: 065

REACTIONS (3)
  - HALLUCINATION [None]
  - HALLUCINATION, VISUAL [None]
  - PARANOIA [None]
